FAERS Safety Report 7428234-2 (Version None)
Quarter: 2011Q2

REPORT INFORMATION
  Report Type: 
  Country: None (occurrence: None)
  Receive Date: 20110421
  Receipt Date: 20110412
  Transmission Date: 20111010
  Serious: No
  Sender: FDA-Public Use
  Company Number: US-BIOGENIDEC-2011BI014286

PATIENT
  Age: 70 Year
  Sex: Female

DRUGS (2)
  1. TYSABRI [Suspect]
     Indication: MULTIPLE SCLEROSIS
     Route: 042
  2. DIABETES MEDICATION (NOS) [Concomitant]
     Indication: DIABETES MELLITUS

REACTIONS (4)
  - CONFUSIONAL STATE [None]
  - DIABETES MELLITUS [None]
  - DEPRESSION [None]
  - STRESS [None]
